FAERS Safety Report 21756428 (Version 1)
Quarter: 2022Q4

REPORT INFORMATION
  Report Type: Spontaneous
  Country: US (occurrence: None)
  Receive Date: 20221220
  Receipt Date: 20221220
  Transmission Date: 20230113
  Serious: No
  Sender: FDA-Public Use
  Company Number: 2022A384194

PATIENT
  Sex: Female
  Weight: 54.4 kg

DRUGS (1)
  1. FARXIGA [Suspect]
     Active Substance: DAPAGLIFLOZIN PROPANEDIOL
     Indication: Cardiac disorder
     Route: 048
     Dates: start: 202210

REACTIONS (3)
  - Genital infection fungal [Recovered/Resolved]
  - Dizziness [Unknown]
  - Product use issue [Unknown]
